FAERS Safety Report 25604242 (Version 1)
Quarter: 2025Q3

REPORT INFORMATION
  Report Type: Report from Study
  Country: EU (occurrence: EU)
  Receive Date: 20250725
  Receipt Date: 20250725
  Transmission Date: 20251021
  Serious: Yes (Hospitalization, Other)
  Sender: GRIFOLS
  Company Number: EU-IGSA-BIG0036684

PATIENT
  Age: 59 Year
  Sex: Male
  Weight: 133 kg

DRUGS (1)
  1. PROLASTIN [Suspect]
     Active Substance: .ALPHA.1-PROTEINASE INHIBITOR HUMAN
     Indication: Alpha-1 antitrypsin deficiency
     Dosage: 6000 MILLIGRAM, Q.WK.
     Route: 042
     Dates: start: 2017

REACTIONS (3)
  - Lymphoma [Not Recovered/Not Resolved]
  - Pain [Not Recovered/Not Resolved]
  - Swelling [Not Recovered/Not Resolved]
